FAERS Safety Report 18970136 (Version 2)
Quarter: 2021Q1

REPORT INFORMATION
  Report Type: Report from Study
  Country: US (occurrence: US)
  Receive Date: 20210304
  Receipt Date: 20210308
  Transmission Date: 20210420
  Serious: Yes (Death, Hospitalization, Disabling, Other)
  Sender: FDA-Public Use
  Company Number: US-JNJFOC-20210244391

PATIENT

DRUGS (3)
  1. MACITENTAN [Suspect]
     Active Substance: MACITENTAN
     Indication: PULMONARY ARTERIAL HYPERTENSION
     Route: 048
  2. RIOCIGUAT. [Suspect]
     Active Substance: RIOCIGUAT
     Indication: PULMONARY ARTERIAL HYPERTENSION
     Route: 065
  3. SELEXIPAG [Suspect]
     Active Substance: SELEXIPAG
     Indication: PULMONARY ARTERIAL HYPERTENSION
     Route: 048

REACTIONS (18)
  - Death [Fatal]
  - Congenital anomaly [Unknown]
  - Disability [Unknown]
  - Asthenia [Unknown]
  - Myalgia [Unknown]
  - Nausea [Unknown]
  - Fluid overload [Unknown]
  - Headache [Unknown]
  - Surgery [Unknown]
  - Hospitalisation [Unknown]
  - Dyspnoea [Unknown]
  - Diarrhoea [Unknown]
  - Arthropathy [Unknown]
  - Bone disorder [Unknown]
  - Pain in extremity [Unknown]
  - Vomiting [Unknown]
  - Haemorrhage [Unknown]
  - Upper respiratory tract infection [Unknown]
